FAERS Safety Report 4700668-6 (Version None)
Quarter: 2005Q2

REPORT INFORMATION
  Report Type: 
  Country: None (occurrence: None)
  Receive Date: 20050627
  Receipt Date: 20050407
  Transmission Date: 20051028
  Serious: Yes (Hospitalization)
  Sender: FDA-Public Use
  Company Number: US-MERCK-0504USA00995

PATIENT
  Age: 65 Year
  Sex: Male
  Weight: 121 kg

DRUGS (17)
  1. VIOXX [Suspect]
     Indication: ARTHRITIS
     Route: 048
     Dates: start: 20020125, end: 20030501
  2. VERAPAMIL [Concomitant]
     Indication: BLOOD PRESSURE MANAGEMENT
     Route: 065
  3. ROXICET [Concomitant]
     Indication: PAIN
     Route: 065
  4. DEXAMETHASONE [Concomitant]
     Indication: NEOPLASM MALIGNANT
     Route: 065
  5. ANZEMET [Concomitant]
     Indication: NEOPLASM MALIGNANT
     Route: 065
  6. EMCYT [Concomitant]
     Indication: NEOPLASM MALIGNANT
     Route: 065
  7. PROCHLORPERAZINE [Concomitant]
     Route: 065
  8. NORVASC [Concomitant]
     Route: 065
  9. FLUTAMIDE [Concomitant]
     Indication: NEOPLASM MALIGNANT
     Route: 065
  10. PREDNISONE [Concomitant]
     Indication: NEOPLASM MALIGNANT
     Route: 065
  11. OXYCODONE [Concomitant]
     Route: 065
  12. DURAGESIC-100 [Concomitant]
     Route: 065
  13. IRON (UNSPECIFIED) [Concomitant]
     Route: 065
  14. PROMETHAZINE [Concomitant]
     Route: 065
  15. PRILOSEC [Concomitant]
     Route: 065
  16. MS CONTIN [Concomitant]
     Indication: PAIN
     Route: 065
  17. ANTINEOPLASTIC (UNSPECIFIED) [Concomitant]
     Indication: NEOPLASM MALIGNANT
     Route: 065

REACTIONS (7)
  - COR PULMONALE [None]
  - DIARRHOEA [None]
  - FAECAL OCCULT BLOOD POSITIVE [None]
  - INFARCTION [None]
  - PROSTATE CANCER RECURRENT [None]
  - PULMONARY EMBOLISM [None]
  - THROMBOSIS [None]
